FAERS Safety Report 5972344-3 (Version None)
Quarter: 2008Q4

REPORT INFORMATION
  Report Type: 
  Country: None (occurrence: None)
  Receive Date: 20081201
  Receipt Date: 20081014
  Transmission Date: 20090506
  Serious: No
  Sender: FDA-Public Use
  Company Number: US-TEVA-178484USA

PATIENT
  Sex: Male

DRUGS (6)
  1. AZILECT [Suspect]
     Indication: PARKINSON'S DISEASE
     Route: 048
  2. INSULIN [Concomitant]
  3. METFORMIN HCL [Concomitant]
  4. SINEMET [Concomitant]
  5. ENTACAPONE [Concomitant]
  6. AMANTADINE HCL [Concomitant]

REACTIONS (2)
  - GAIT DISTURBANCE [None]
  - PARKINSON'S DISEASE [None]
